FAERS Safety Report 15907934 (Version 1)
Quarter: 2019Q1

REPORT INFORMATION
  Report Type: Spontaneous
  Country: SE (occurrence: SE)
  Receive Date: 20190204
  Receipt Date: 20190204
  Transmission Date: 20190417
  Serious: Yes (Other)
  Sender: FDA-Public Use
  Company Number: SE-AMREGENT-20190134

PATIENT
  Age: 41 Year
  Sex: Male

DRUGS (6)
  1. NEBIDO [Concomitant]
     Active Substance: TESTOSTERONE UNDECANOATE
     Dosage: UNKNOWN
     Route: 065
  2. FERINJECT [Suspect]
     Active Substance: FERRIC CARBOXYMALTOSE
     Dosage: 20 ML
     Route: 042
     Dates: start: 20181210, end: 20181210
  3. KALCIPOS-D FORTE [Concomitant]
     Active Substance: CALCIUM CARBONATE\CHOLECALCIFEROL
     Dosage: UNKNOWN
     Route: 065
  4. SOLVEZINK [Concomitant]
     Dosage: UNKNOWN
     Route: 065
  5. DIVISUN [Concomitant]
     Dosage: UNKNOWN
     Route: 065
  6. BEHAPAN [Concomitant]
     Dosage: UNKNOWN
     Route: 065

REACTIONS (1)
  - Influenza like illness [Unknown]

NARRATIVE: CASE EVENT DATE: 20181211
